FAERS Safety Report 6672568-6 (Version None)
Quarter: 2010Q2

REPORT INFORMATION
  Report Type: 
  Country: None (occurrence: None)
  Receive Date: 20100408
  Receipt Date: 20100401
  Transmission Date: 20101027
  Serious: Yes (Hospitalization)
  Sender: FDA-Public Use
  Company Number: FR-BRISTOL-MYERS SQUIBB COMPANY-15047111

PATIENT
  Age: 29 Year
  Sex: Male

DRUGS (2)
  1. CORGARD [Suspect]
     Dosage: 14 TABS
     Route: 048
     Dates: start: 20100208, end: 20100208
  2. TETRAZEPAM [Suspect]
     Dosage: 2TABS
     Route: 048
     Dates: start: 20100208, end: 20100208

REACTIONS (3)
  - BRADYCARDIA [None]
  - HYPOTENSION [None]
  - INTENTIONAL OVERDOSE [None]
